FAERS Safety Report 19798666 (Version 1)
Quarter: 2021Q3

REPORT INFORMATION
  Report Type: Spontaneous
  Country: US (occurrence: US)
  Receive Date: 20210907
  Receipt Date: 20210907
  Transmission Date: 20211014
  Serious: Yes (Hospitalization)
  Sender: FDA-Public Use
  Company Number: None

PATIENT
  Age: 17 Year
  Sex: Male

DRUGS (3)
  1. DOXORUBICIN [Suspect]
     Active Substance: DOXORUBICIN
     Route: 042
  2. CISPLATIN. [Suspect]
     Active Substance: CISPLATIN
     Indication: HEPATOCELLULAR CARCINOMA
     Route: 042
  3. SORAFENIB [Concomitant]
     Active Substance: SORAFENIB
     Dates: start: 20210513, end: 20210515

REACTIONS (1)
  - Hyperammonaemic encephalopathy [None]

NARRATIVE: CASE EVENT DATE: 20210515
